FAERS Safety Report 4541862-7 (Version None)
Quarter: 2004Q4

REPORT INFORMATION
  Report Type: 
  Country: None (occurrence: None)
  Receive Date: 20041227
  Receipt Date: 20041214
  Transmission Date: 20050328
  Serious: Yes (Hospitalization)
  Sender: FDA-Public Use
  Company Number: MK200412-0306-1

PATIENT
  Age: 57 Year
  Sex: Male

DRUGS (3)
  1. ANAFRANIL [Suspect]
     Dates: start: 20010101, end: 20030501
  2. CIPROFLOXACIN [Concomitant]
  3. PROMAZINE HCL [Concomitant]

REACTIONS (5)
  - GENERAL PHYSICAL HEALTH DETERIORATION [None]
  - MUSCLE RIGIDITY [None]
  - NEUROLEPTIC MALIGNANT SYNDROME [None]
  - URINARY INCONTINENCE [None]
  - URINARY TRACT INFECTION [None]
